FAERS Safety Report 12280478 (Version 1)
Quarter: 2016Q2

REPORT INFORMATION
  Report Type: Spontaneous
  Country: GB (occurrence: GB)
  Receive Date: 20160419
  Receipt Date: 20160419
  Transmission Date: 20160815
  Serious: Yes (Hospitalization, Other)
  Sender: FDA-Public Use
  Company Number: GB-ACCORD-039645

PATIENT
  Age: 15 Year
  Sex: Female
  Weight: 59 kg

DRUGS (9)
  1. PROPOFOL. [Concomitant]
     Active Substance: PROPOFOL
     Indication: GENERAL ANAESTHESIA
     Dates: start: 20160324, end: 20160324
  2. FENTANYL. [Concomitant]
     Active Substance: FENTANYL
     Indication: GENERAL ANAESTHESIA
     Dates: start: 20160324, end: 20160324
  3. PARACETAMOL [Concomitant]
     Active Substance: ACETAMINOPHEN
     Indication: GENERAL ANAESTHESIA
     Dates: start: 20160324, end: 20160324
  4. DEXAMETHASONE. [Concomitant]
     Active Substance: DEXAMETHASONE
     Indication: GENERAL ANAESTHESIA
     Dates: start: 20160324, end: 20160324
  5. ONDANSETRON [Suspect]
     Active Substance: ONDANSETRON
     Indication: PROPHYLAXIS OF NAUSEA AND VOMITING
     Route: 042
     Dates: start: 20160324, end: 20160324
  6. MORPHINE [Concomitant]
     Active Substance: MORPHINE
     Indication: GENERAL ANAESTHESIA
     Dates: start: 20160324, end: 20160324
  7. ATRACURIUM [Concomitant]
     Active Substance: ATRACURIUM
     Indication: GENERAL ANAESTHESIA
     Dates: start: 20160324, end: 20160324
  8. SEVOFLURANE. [Concomitant]
     Active Substance: SEVOFLURANE
     Indication: GENERAL ANAESTHESIA
     Dates: start: 20160324, end: 20160324
  9. PARECOXIB/PARECOXIB SODIUM [Concomitant]
     Indication: GENERAL ANAESTHESIA
     Dates: start: 20160324, end: 20160324

REACTIONS (2)
  - Myoclonus [Recovered/Resolved]
  - Depressed level of consciousness [Recovered/Resolved]

NARRATIVE: CASE EVENT DATE: 20160324
